FAERS Safety Report 4471444-7 (Version None)
Quarter: 2004Q4

REPORT INFORMATION
  Report Type: 
  Country: None (occurrence: None)
  Receive Date: 20041007
  Receipt Date: 20041004
  Transmission Date: 20050328
  Serious: Yes (Other)
  Sender: FDA-Public Use
  Company Number: 002853

PATIENT
  Age: 67 Year
  Sex: Female

DRUGS (7)
  1. MEDROXYPROGESTERONE ACETATE [Suspect]
     Dates: start: 19920101, end: 19960101
  2. PREMARIN [Suspect]
     Dates: start: 19920101, end: 19960101
  3. PROVERA [Suspect]
     Dates: start: 19920101, end: 19960101
  4. MEDROXYPROGESTERONE ACETATE [Suspect]
     Dates: start: 19960101, end: 20000601
  5. ESTRATEST [Suspect]
     Dates: start: 19920101, end: 19920101
  6. OGEN [Suspect]
     Dates: start: 19920101, end: 19920101
  7. ESTRACE [Suspect]
     Dates: start: 19940101, end: 19940101

REACTIONS (1)
  - BREAST CANCER FEMALE [None]
